FAERS Safety Report 10346059 (Version 3)
Quarter: 2015Q2

REPORT INFORMATION
  Report Type: Spontaneous
  Country: US (occurrence: US)
  Receive Date: 20140728
  Receipt Date: 20150612
  Transmission Date: 20150821
  Serious: Yes (Other)
  Sender: FDA-Public Use
  Company Number: US-BAYER-2014-109536

PATIENT
  Age: 23 Year
  Sex: Female

DRUGS (4)
  1. YASMIN [Suspect]
     Active Substance: DROSPIRENONE\ETHINYL ESTRADIOL
     Dosage: UNK
     Dates: start: 200802, end: 200903
  2. YAZ [Suspect]
     Active Substance: DROSPIRENONE\ETHINYL ESTRADIOL
     Dosage: UNK
     Dates: start: 200802, end: 200903
  3. AMOXICILLIN. [Concomitant]
     Active Substance: AMOXICILLIN
  4. NEXIUM [Concomitant]
     Active Substance: ESOMEPRAZOLE MAGNESIUM

REACTIONS (9)
  - General physical health deterioration [None]
  - Pain [None]
  - Dyspnoea [None]
  - Anxiety [None]
  - Deep vein thrombosis [None]
  - Injury [None]
  - Cholelithiasis [Recovered/Resolved]
  - Emotional distress [None]
  - Chest pain [None]

NARRATIVE: CASE EVENT DATE: 20081022
